FAERS Safety Report 5886957-0 (Version None)
Quarter: 2008Q3

REPORT INFORMATION
  Report Type: 
  Country: None (occurrence: None)
  Receive Date: 20080917
  Receipt Date: 20080915
  Transmission Date: 20090109
  Serious: No
  Sender: FDA-Public Use
  Company Number: US-B.I. PHARMACEUTICALS,INC./RIDGEFIELD-2008-BP-14332BP

PATIENT
  Sex: Female

DRUGS (3)
  1. MICARDIS [Suspect]
     Indication: HYPERTENSION
     Dosage: 40MG
     Route: 048
     Dates: start: 20080912
  2. EFFEXOR [Concomitant]
     Indication: DEPRESSION
  3. FEMARA [Concomitant]
     Indication: BREAST CANCER

REACTIONS (2)
  - DIARRHOEA [None]
  - HYPOTENSION [None]
